FAERS Safety Report 7036857-8 (Version None)
Quarter: 2010Q4

REPORT INFORMATION
  Report Type: 
  Country: None (occurrence: None)
  Receive Date: 20101011
  Receipt Date: 20100929
  Transmission Date: 20110411
  Serious: Yes (Other)
  Sender: FDA-Public Use
  Company Number: CA-JNJFOC-20101000961

PATIENT
  Sex: Female
  Weight: 64 kg

DRUGS (3)
  1. REMICADE [Suspect]
     Indication: ANKYLOSING SPONDYLITIS
     Route: 042
  2. REMICADE [Suspect]
     Indication: CROHN'S DISEASE
     Route: 042
  3. MTX [Concomitant]

REACTIONS (5)
  - ERYTHEMA [None]
  - OVARIAN CYST [None]
  - POLYP [None]
  - PRURITUS [None]
  - RASH ERYTHEMATOUS [None]
